FAERS Safety Report 12182872 (Version 1)
Quarter: 2016Q1

REPORT INFORMATION
  Report Type: Spontaneous
  Country: US (occurrence: US)
  Receive Date: 20160316
  Receipt Date: 20160316
  Transmission Date: 20160526
  Serious: No
  Sender: FDA-Public Use
  Company Number: US-ASTRAZENECA-2016SE25129

PATIENT
  Sex: Female

DRUGS (1)
  1. BYDUREON [Suspect]
     Active Substance: EXENATIDE
     Indication: GLUCOSE TOLERANCE IMPAIRED
     Route: 065

REACTIONS (2)
  - Intentional product misuse [Unknown]
  - Injection site mass [Unknown]
